FAERS Safety Report 16651766 (Version 1)
Quarter: 2019Q3

REPORT INFORMATION
  Report Type: Spontaneous
  Country: US (occurrence: US)
  Receive Date: 20190730
  Receipt Date: 20190730
  Transmission Date: 20191004
  Serious: Yes (Death)
  Sender: FDA-Public Use
  Company Number: None

PATIENT
  Age: 60 Year
  Sex: Male
  Weight: 64.35 kg

DRUGS (14)
  1. PROCHLORPERAZINE. [Concomitant]
     Active Substance: PROCHLORPERAZINE
  2. ASPIRIN. [Concomitant]
     Active Substance: ASPIRIN
  3. GENTAMICIN. [Concomitant]
     Active Substance: GENTAMICIN
  4. POTASSIUM [Concomitant]
     Active Substance: POTASSIUM
  5. VITAMIN B COMPLEX [Concomitant]
     Active Substance: CYANOCOBALAMIN\DEXPANTHENOL\NIACINAMIDE\PYRIDOXINE HYDROCHLORIDE\RIBOFLAVIN 5^-PHOSPHATE SODIUM\THIAMINE HYDROCHLORIDE\VITAMIN B COMPLEX
  6. PANTOPRAZOLE [Concomitant]
     Active Substance: PANTOPRAZOLE
  7. AMIODARONE [Concomitant]
     Active Substance: AMIODARONE
  8. MIDODRINE [Concomitant]
     Active Substance: MIDODRINE
  9. XALKORI [Suspect]
     Active Substance: CRIZOTINIB
     Indication: LUNG CARCINOMA CELL TYPE UNSPECIFIED STAGE 0
     Route: 048
     Dates: start: 20190530, end: 20190730
  10. ATORVASTATIN [Concomitant]
     Active Substance: ATORVASTATIN
  11. METOPROLOL. [Concomitant]
     Active Substance: METOPROLOL
  12. CALCITRIOL. [Concomitant]
     Active Substance: CALCITRIOL
  13. LEVETIRACETAM. [Concomitant]
     Active Substance: LEVETIRACETAM
  14. MUPIROCIN. [Concomitant]
     Active Substance: MUPIROCIN

REACTIONS (1)
  - Death [None]

NARRATIVE: CASE EVENT DATE: 20190730
